FAERS Safety Report 5797272-8 (Version None)
Quarter: 2008Q3

REPORT INFORMATION
  Report Type: 
  Country: None (occurrence: None)
  Receive Date: 20080701
  Receipt Date: 20080619
  Transmission Date: 20090109
  Serious: Yes (Hospitalization)
  Sender: FDA-Public Use
  Company Number: DE-PFIZER INC-2008047253

PATIENT
  Sex: Female
  Weight: 54 kg

DRUGS (10)
  1. LYRICA [Suspect]
     Indication: NEUROPATHY PERIPHERAL
     Route: 048
  2. LYRICA [Suspect]
     Indication: PAIN
  3. AMITRIPTYLINE HCL [Concomitant]
  4. PANTOPRAZOLE SODIUM [Concomitant]
  5. NALOXONE/OXYCODONE [Concomitant]
  6. NOVALGIN [Concomitant]
  7. ALL OTHER THERAPEUTIC PRODUCTS [Concomitant]
  8. OMEPRAZOLE [Concomitant]
  9. SERTRALINE [Concomitant]
     Route: 048
  10. TORSEMIDE [Concomitant]

REACTIONS (11)
  - ANAEMIA [None]
  - ARTHRALGIA [None]
  - BLOOD CREATINE PHOSPHOKINASE INCREASED [None]
  - CARDIAC FAILURE [None]
  - HEPATIC ENZYME INCREASED [None]
  - HEPATOMEGALY [None]
  - INFLAMMATION [None]
  - LIVER DISORDER [None]
  - LYMPHADENOPATHY [None]
  - PERICARDIAL EFFUSION [None]
  - PLEURAL EFFUSION [None]
